FAERS Safety Report 7760667 (Version 10)
Quarter: 2014Q1

REPORT INFORMATION
  Report Type: Report from Study
  Country: JP (occurrence: JP)
  Receive Date: 20110114
  Receipt Date: 20140321
  Transmission Date: 20141002
  Serious: Yes (Death, Hospitalization)
  Sender: FDA-Public Use
  Company Number: JP-JNJFOC-20110102047

PATIENT
  Age: 48 Year
  Sex: Female
  Weight: 43 kg

DRUGS (197)
  1. REMICADE [Suspect]
     Indication: PSORIATIC ARTHROPATHY
     Route: 042
     Dates: start: 20100831
  2. REMICADE [Suspect]
     Indication: PSORIATIC ARTHROPATHY
     Dosage: 3RD DOSE
     Route: 042
     Dates: start: 20100928
  3. REMICADE [Suspect]
     Indication: PSORIATIC ARTHROPATHY
     Route: 042
     Dates: start: 20100817
  4. PREDNISOLONE [Suspect]
     Indication: PSORIATIC ARTHROPATHY
     Route: 048
     Dates: start: 20100914, end: 20110103
  5. PREDNISOLONE [Suspect]
     Indication: PSORIATIC ARTHROPATHY
     Route: 048
  6. PREDNISOLONE [Suspect]
     Indication: PSORIATIC ARTHROPATHY
     Route: 048
     Dates: start: 20100901, end: 20100907
  7. BAKTAR [Suspect]
     Indication: PRODUCT USED FOR UNKNOWN INDICATION
     Dosage: 6 TABS
     Route: 048
     Dates: start: 20101029, end: 20101031
  8. BAKTAR [Suspect]
     Indication: PRODUCT USED FOR UNKNOWN INDICATION
     Dosage: 2 TABS
     Route: 048
     Dates: start: 20101118, end: 20101119
  9. BAKTAR [Suspect]
     Indication: PRODUCT USED FOR UNKNOWN INDICATION
     Dosage: 6 TABS
     Route: 048
     Dates: start: 20101102, end: 20101115
  10. BAKTAR [Suspect]
     Indication: PRODUCT USED FOR UNKNOWN INDICATION
     Dosage: 2 TABS
     Route: 048
     Dates: start: 20101122, end: 20101123
  11. BAKTAR [Suspect]
     Indication: PRODUCT USED FOR UNKNOWN INDICATION
     Dosage: 6 TABS
     Route: 048
     Dates: start: 20101025, end: 20101111
  12. BAKTAR [Suspect]
     Indication: PRODUCT USED FOR UNKNOWN INDICATION
     Dosage: 9 TABS
     Route: 048
     Dates: start: 20101022, end: 20101025
  13. LASIX [Suspect]
     Indication: PRODUCT USED FOR UNKNOWN INDICATION
     Route: 048
     Dates: start: 20101102, end: 20101106
  14. LASIX [Suspect]
     Indication: PRODUCT USED FOR UNKNOWN INDICATION
     Route: 048
     Dates: start: 20101125, end: 20101125
  15. LASIX [Suspect]
     Indication: PRODUCT USED FOR UNKNOWN INDICATION
     Route: 048
     Dates: start: 20101117, end: 20101122
  16. LASIX [Suspect]
     Indication: PRODUCT USED FOR UNKNOWN INDICATION
     Route: 048
     Dates: start: 20101215, end: 20101216
  17. LASIX [Suspect]
     Indication: PRODUCT USED FOR UNKNOWN INDICATION
     Route: 048
     Dates: start: 20101029, end: 20101031
  18. LASIX [Suspect]
     Indication: PRODUCT USED FOR UNKNOWN INDICATION
     Route: 048
     Dates: start: 20101028, end: 20101028
  19. LASIX [Suspect]
     Indication: PRODUCT USED FOR UNKNOWN INDICATION
     Route: 048
     Dates: start: 20101026, end: 20101027
  20. MEROPENEM [Suspect]
     Indication: PRODUCT USED FOR UNKNOWN INDICATION
     Dates: start: 20101027, end: 20101105
  21. ALBUMIN HUMAN [Suspect]
     Indication: PRODUCT USED FOR UNKNOWN INDICATION
     Dates: start: 20101202, end: 20101204
  22. ALBUMIN HUMAN [Suspect]
     Indication: PRODUCT USED FOR UNKNOWN INDICATION
     Dates: start: 20101231, end: 20101231
  23. ALBUMIN HUMAN [Suspect]
     Indication: PRODUCT USED FOR UNKNOWN INDICATION
     Dates: start: 20110102, end: 20110102
  24. ALBUMIN HUMAN [Suspect]
     Indication: PRODUCT USED FOR UNKNOWN INDICATION
     Dates: start: 20101119, end: 20101124
  25. ALBUMIN HUMAN [Suspect]
     Indication: PRODUCT USED FOR UNKNOWN INDICATION
     Dates: start: 20101102, end: 20101106
  26. FIRSTCIN [Suspect]
     Indication: PRODUCT USED FOR UNKNOWN INDICATION
     Dates: start: 20101118, end: 20101118
  27. FIRSTCIN [Suspect]
     Indication: PRODUCT USED FOR UNKNOWN INDICATION
     Dates: start: 20101119, end: 20101119
  28. FIRSTCIN [Suspect]
     Indication: PRODUCT USED FOR UNKNOWN INDICATION
     Dates: start: 20101105, end: 20101110
  29. PARIET [Suspect]
     Indication: PRODUCT USED FOR UNKNOWN INDICATION
     Route: 048
     Dates: start: 20101027, end: 20101027
  30. PARIET [Suspect]
     Indication: PRODUCT USED FOR UNKNOWN INDICATION
     Route: 048
     Dates: start: 20101029, end: 20101031
  31. PARIET [Suspect]
     Indication: PRODUCT USED FOR UNKNOWN INDICATION
     Route: 048
     Dates: start: 20101028, end: 20101028
  32. PARIET [Suspect]
     Indication: PRODUCT USED FOR UNKNOWN INDICATION
     Route: 048
     Dates: start: 20101102, end: 20101106
  33. PARIET [Suspect]
     Indication: PRODUCT USED FOR UNKNOWN INDICATION
     Route: 048
     Dates: start: 20101026, end: 20101026
  34. PARIET [Suspect]
     Indication: PRODUCT USED FOR UNKNOWN INDICATION
     Route: 048
     Dates: start: 20101023, end: 20101025
  35. ALDACTONE A [Suspect]
     Indication: PRODUCT USED FOR UNKNOWN INDICATION
     Route: 048
     Dates: start: 20101112, end: 20101114
  36. ALDACTONE A [Suspect]
     Indication: PRODUCT USED FOR UNKNOWN INDICATION
     Route: 048
     Dates: start: 20101115, end: 20101115
  37. ALDACTONE A [Suspect]
     Indication: PRODUCT USED FOR UNKNOWN INDICATION
     Route: 048
     Dates: start: 20101116, end: 20101122
  38. ALDACTONE A [Suspect]
     Indication: PRODUCT USED FOR UNKNOWN INDICATION
     Route: 048
     Dates: start: 20101102, end: 20101106
  39. ALDACTONE A [Suspect]
     Indication: PRODUCT USED FOR UNKNOWN INDICATION
     Route: 048
     Dates: start: 20101026, end: 20101101
  40. ROCEPHIN [Suspect]
     Indication: PRODUCT USED FOR UNKNOWN INDICATION
     Dates: start: 20101118, end: 20101122
  41. ROCEPHIN [Suspect]
     Indication: PRODUCT USED FOR UNKNOWN INDICATION
     Dates: start: 20101118, end: 20101119
  42. URSO [Concomitant]
     Indication: HEPATITIS C
     Route: 048
     Dates: start: 20100914, end: 20101018
  43. URSO [Concomitant]
     Indication: HEPATITIS C
     Route: 048
     Dates: start: 20101029, end: 20101122
  44. URSO [Concomitant]
     Indication: HEPATITIS C
     Route: 048
     Dates: start: 20101221, end: 20110103
  45. URSO [Concomitant]
     Indication: HEPATITIS C
     Route: 048
     Dates: start: 20100817, end: 20100906
  46. DERMOVATE [Concomitant]
     Indication: PSORIATIC ARTHROPATHY
     Route: 061
  47. OXAROL [Concomitant]
     Indication: PSORIATIC ARTHROPATHY
     Route: 061
  48. HYDROCORTISONE BUTYRATE [Concomitant]
     Indication: PSORIATIC ARTHROPATHY
     Route: 061
  49. ANTEBATE [Concomitant]
     Indication: PSORIATIC ARTHROPATHY
     Route: 061
  50. SELBEX [Concomitant]
     Indication: PROPHYLAXIS
     Route: 048
     Dates: start: 20100928, end: 20101025
  51. SELBEX [Concomitant]
     Indication: PROPHYLAXIS
     Route: 048
     Dates: start: 20101121, end: 20110103
  52. DEPAS [Concomitant]
     Indication: INSOMNIA
     Route: 048
     Dates: start: 20100914, end: 20100914
  53. DEPAS [Concomitant]
     Indication: INSOMNIA
     Route: 048
     Dates: start: 20100915, end: 20101122
  54. DEPAS [Concomitant]
     Indication: INSOMNIA
     Route: 048
     Dates: start: 20101215, end: 20101225
  55. DEPAS [Concomitant]
     Indication: INSOMNIA
     Route: 048
     Dates: start: 20100901, end: 20100913
  56. HEPAFLUSH [Concomitant]
     Dates: start: 20100827, end: 20100827
  57. HEPAFLUSH [Concomitant]
     Dates: start: 20101201, end: 20101216
  58. HEPAFLUSH [Concomitant]
     Dates: start: 20101118, end: 20101124
  59. HEPAFLUSH [Concomitant]
     Dates: start: 20101022, end: 20101111
  60. HEPAFLUSH [Concomitant]
     Dates: start: 20101001, end: 20101012
  61. HEPAFLUSH [Concomitant]
     Dates: start: 20101221, end: 20110103
  62. HEPAFLUSH [Concomitant]
     Dates: start: 20100826, end: 20100826
  63. HEPAFLUSH [Concomitant]
     Dates: start: 20100824, end: 20100825
  64. HEPAFLUSH [Concomitant]
     Dates: start: 20100823, end: 20100823
  65. HEPAFLUSH [Concomitant]
     Dates: start: 20100821, end: 20100822
  66. HEPAFLUSH [Concomitant]
     Dates: start: 20100817, end: 20100817
  67. ISOTONIC SODIUM CHLORIDE [Concomitant]
     Route: 042
     Dates: start: 20100831, end: 20100831
  68. ISOTONIC SODIUM CHLORIDE [Concomitant]
     Route: 042
     Dates: start: 20100928, end: 20100928
  69. ISOTONIC SODIUM CHLORIDE [Concomitant]
     Route: 042
     Dates: start: 20101001, end: 20110103
  70. ISOTONIC SODIUM CHLORIDE [Concomitant]
     Route: 042
     Dates: start: 20100821, end: 20100827
  71. ISOTONIC SODIUM CHLORIDE [Concomitant]
     Route: 042
     Dates: start: 20100817, end: 20100817
  72. DISTILLED WATER [Concomitant]
     Dates: start: 20100928, end: 20100928
  73. DISTILLED WATER [Concomitant]
     Dates: start: 20101102, end: 20101102
  74. DISTILLED WATER [Concomitant]
     Dates: start: 20101122, end: 20101124
  75. DISTILLED WATER [Concomitant]
     Dates: start: 20100831, end: 20100831
  76. DISTILLED WATER [Concomitant]
     Dosage: ALL REPORTED AS 20 DF
     Dates: start: 20100817, end: 20100827
  77. NEO-MINOPHAGEN C [Concomitant]
     Dates: start: 20100831, end: 20100831
  78. NEO-MINOPHAGEN C [Concomitant]
     Dates: start: 20101018
  79. NEO-MINOPHAGEN C [Concomitant]
     Dates: start: 20100928, end: 20100928
  80. NEO-MINOPHAGEN C [Concomitant]
     Dates: start: 20100928, end: 20100928
  81. NEO-MINOPHAGEN C [Concomitant]
     Dates: start: 20100914, end: 20100914
  82. NEO-MINOPHAGEN C [Concomitant]
     Dates: end: 20101012
  83. NEO-MINOPHAGEN C [Concomitant]
     Dates: start: 20100826, end: 20100826
  84. NEO-MINOPHAGEN C [Concomitant]
     Dates: start: 20100823, end: 20100823
  85. NEO-MINOPHAGEN C [Concomitant]
     Dates: start: 20100819, end: 20100819
  86. NEO-MINOPHAGEN C [Concomitant]
     Dates: start: 20100817, end: 20100817
  87. LAMISIL [Concomitant]
     Route: 061
     Dates: start: 20100818, end: 20100818
  88. CRAVIT [Concomitant]
     Route: 048
     Dates: start: 20100827, end: 20100830
  89. CRAVIT [Concomitant]
     Route: 048
     Dates: start: 20101222, end: 20110103
  90. DOVONEX [Concomitant]
     Route: 061
     Dates: start: 20100926, end: 20100926
  91. DOVONEX [Concomitant]
     Route: 061
     Dates: start: 20100928, end: 20100928
  92. DOVONEX [Concomitant]
     Route: 061
     Dates: start: 20101008, end: 20101008
  93. DOVONEX [Concomitant]
     Route: 061
     Dates: start: 20100901, end: 20100901
  94. FUNGIZONE [Concomitant]
     Route: 048
     Dates: start: 20100930, end: 20101018
  95. FUNGIZONE [Concomitant]
     Route: 048
     Dates: start: 20101103, end: 20101109
  96. FUNGIZONE [Concomitant]
     Route: 048
     Dates: start: 20101116, end: 20101122
  97. FUNGIZONE [Concomitant]
     Route: 048
     Dates: start: 20100928, end: 20100929
  98. FUNGIZONE [Concomitant]
     Route: 048
     Dates: start: 20100926, end: 20100927
  99. NON-PYRINE COLD PREPARATION [Concomitant]
     Route: 048
     Dates: start: 20100926, end: 20100929
  100. LIDEX CREAM [Concomitant]
  101. HYALEIN [Concomitant]
     Route: 031
     Dates: start: 20101008, end: 20101008
  102. HEPARINOID [Concomitant]
     Route: 061
     Dates: start: 20101015, end: 20101201
  103. GLYCERINE [Concomitant]
     Route: 054
     Dates: start: 20101022, end: 20101022
  104. LACTATED RINGER^S SOLUTION [Concomitant]
     Dosage: DOSE = 500 DF
     Dates: start: 20101022, end: 20101022
  105. LACTATED RINGER^S SOLUTION [Concomitant]
     Dates: start: 20110102, end: 20110102
  106. SOL MELCORT [Concomitant]
     Dates: start: 20101221, end: 20101223
  107. SOL MELCORT [Concomitant]
     Dates: start: 20110101, end: 20110103
  108. SOL MELCORT [Concomitant]
     Dates: start: 20101022, end: 20101024
  109. PROPETO [Concomitant]
     Route: 061
     Dates: start: 20101023, end: 20101129
  110. VEEN-F [Concomitant]
     Dates: start: 20101023, end: 20101025
  111. VEEN-F [Concomitant]
     Dates: start: 20110102, end: 20110102
  112. VITAMEDIN [Concomitant]
     Dates: start: 20101023, end: 20101029
  113. VITAMEDIN [Concomitant]
     Dates: start: 20110102, end: 20110103
  114. PENTAGIN [Concomitant]
     Route: 030
     Dates: start: 20101024, end: 20101024
  115. PENTAGIN [Concomitant]
     Route: 030
     Dates: start: 20101231, end: 20110103
  116. ATARAX-P [Concomitant]
     Dates: start: 20110101, end: 20110103
  117. ATARAX-P [Concomitant]
     Dates: start: 20101231, end: 20110103
  118. ATARAX-P [Concomitant]
     Dates: start: 20101024, end: 20101025
  119. PRIMPERAN [Concomitant]
     Dates: start: 20101024, end: 20101024
  120. VEEN-D [Concomitant]
     Dates: start: 20101025, end: 20101025
  121. ATROPINE SULFATE [Concomitant]
     Route: 030
     Dates: start: 20101025, end: 20101025
  122. PREDONINE [Concomitant]
     Route: 048
     Dates: start: 20101116, end: 20101201
  123. PREDONINE [Concomitant]
     Route: 048
     Dates: start: 20101201, end: 20101224
  124. PREDONINE [Concomitant]
     Route: 048
     Dates: start: 20101224, end: 20110103
  125. PREDONINE [Concomitant]
     Route: 048
     Dates: start: 20101109, end: 20101116
  126. PREDONINE [Concomitant]
     Route: 048
     Dates: start: 20101025, end: 20101109
  127. SOLITA-T NO.4 [Concomitant]
     Dates: start: 20101026, end: 20101104
  128. MUCOSTA [Concomitant]
     Route: 048
     Dates: start: 20101026, end: 20101122
  129. GLOVENIN-I [Concomitant]
     Dates: start: 20101028, end: 20101030
  130. GLOVENIN-I [Concomitant]
     Dates: start: 20101119, end: 20101121
  131. SODIUM CHLORIDE 10% [Concomitant]
     Route: 042
     Dates: start: 20101102, end: 20101102
  132. POLAPREZINC [Concomitant]
     Dosage: DOSE: 150DF A DAY
     Route: 048
     Dates: start: 20101105, end: 20101110
  133. POLAPREZINC [Concomitant]
     Route: 048
     Dates: start: 20101112, end: 20101122
  134. FERRO-GRADUMET [Concomitant]
     Route: 048
     Dates: start: 20101105, end: 20101110
  135. FERRO-GRADUMET [Concomitant]
     Route: 048
     Dates: start: 20101112, end: 20101122
  136. SOLDEM 1 [Concomitant]
     Dates: start: 20101221, end: 20101223
  137. SOLDEM 1 [Concomitant]
     Dates: start: 20100101, end: 20110103
  138. SOLDEM 1 [Concomitant]
     Dates: start: 20101119, end: 20101120
  139. GLUCOSE [Concomitant]
     Dates: start: 20101119, end: 20110103
  140. HUMALOG [Concomitant]
     Dates: start: 20101119, end: 20101119
  141. HUMALOG [Concomitant]
     Dates: start: 20101220, end: 20101220
  142. THYRADIN S [Concomitant]
     Dosage: DOSE: 25DF
     Route: 048
     Dates: start: 20101106, end: 20101126
  143. GASTER [Concomitant]
     Route: 048
     Dates: start: 20101106
  144. CALONAL [Concomitant]
     Indication: ANTIPYRESIS
     Dosage: 200DF
     Route: 048
     Dates: start: 20101230, end: 201101
  145. CALONAL [Concomitant]
     Indication: ANTIPYRESIS
     Dosage: 200DF
     Route: 048
     Dates: start: 20101119, end: 20101123
  146. ALLOID G [Concomitant]
     Route: 048
     Dates: start: 20101124, end: 20101130
  147. ALLOID G [Concomitant]
     Route: 048
     Dates: start: 20101230, end: 20110103
  148. LAC-B [Concomitant]
     Route: 048
     Dates: start: 20101201, end: 20101207
  149. DEXALTIN [Concomitant]
     Route: 061
     Dates: start: 20101201, end: 20101201
  150. MAINTENANCE MEDIUM WITH GLUCOSE [Concomitant]
     Dosage: DOSE: 500DF
     Dates: start: 20101201, end: 20101204
  151. KCL [Concomitant]
     Dates: start: 20101201, end: 20101206
  152. BFLUID [Concomitant]
     Dates: start: 20101201, end: 20101206
  153. BFLUID [Concomitant]
     Dates: start: 20110102, end: 20110103
  154. LIDOMEX [Concomitant]
     Route: 061
     Dates: start: 20101203, end: 20101212
  155. LIDOMEX [Concomitant]
     Route: 061
     Dates: start: 20101209, end: 20101209
  156. LIDOMEX [Concomitant]
     Route: 061
     Dates: start: 20101008, end: 20101008
  157. SLOW-K [Concomitant]
     Route: 048
     Dates: start: 20101213, end: 20101222
  158. GENINAX [Concomitant]
     Route: 048
     Dates: start: 20101216
  159. LUPRAC [Concomitant]
     Route: 048
     Dates: start: 20101216
  160. BENAMBAX [Concomitant]
     Dates: start: 20101222, end: 20101224
  161. INTAL [Concomitant]
     Route: 055
     Dates: start: 20101222, end: 20101228
  162. MEPTIN [Concomitant]
     Route: 055
     Dates: start: 20101222, end: 20101228
  163. LOXONIN [Concomitant]
     Indication: PAIN PROPHYLAXIS
     Dosage: DOSE: 60DF
     Route: 048
     Dates: start: 20101230, end: 20110103
  164. COAHIBITOR [Concomitant]
     Dates: start: 20101231, end: 20110103
  165. LASTET [Concomitant]
     Dates: start: 20110102, end: 20110102
  166. NOVO HEPARIN [Concomitant]
     Dates: start: 20110102, end: 20110102
  167. MEYLON [Concomitant]
     Dates: start: 20110102, end: 20110102
  168. CALCICOL [Concomitant]
     Dates: start: 20110102, end: 20110102
  169. ALINAMIN F [Concomitant]
     Dates: start: 20110102, end: 20110102
  170. DALACIN-S [Concomitant]
     Dates: start: 20110102, end: 20110103
  171. VANCOMYCIN [Concomitant]
     Dates: start: 20110102, end: 20110103
  172. INTRAVENOUS HYPERALIMENTATION [Concomitant]
     Dosage: DOSE: 500DF
     Dates: start: 20110102, end: 20110103
  173. ELEMENMIC [Concomitant]
     Dates: start: 20110102, end: 20110103
  174. PROPOFOL [Concomitant]
     Dates: start: 20110103, end: 20110103
  175. DOBUTAMINE HYDROCHLORIDE [Concomitant]
     Dates: start: 20110103, end: 20110103
  176. ANTEBATE [Concomitant]
     Indication: PSORIATIC ARTHROPATHY
     Dosage: START DATE REPORTED AS PRIOR TO INITIATION OF INFLIXIMAB
     Route: 061
  177. DERMOVATE [Concomitant]
     Indication: PSORIATIC ARTHROPATHY
     Dosage: START DATE REPORTED AS PRIOR TO INITIATION OF INFLIXIMAB
     Route: 061
  178. CIPRO (CIPROFLOXACIN HYDROCHLORIDE) [Concomitant]
     Dates: end: 20101027
  179. CIPRO (CIPROFLOXACIN HYDROCHLORIDE) [Concomitant]
     Dates: end: 20101216
  180. LOCOID C [Concomitant]
     Indication: PSORIATIC ARTHROPATHY
     Route: 061
     Dates: start: 20101008, end: 20101008
  181. INOVAN [Concomitant]
     Dates: start: 20110103, end: 20110103
  182. VOLTAREN [Concomitant]
     Indication: ANTIPYRESIS
     Route: 054
     Dates: start: 20100823, end: 20100823
  183. VOLTAREN [Concomitant]
     Indication: ANTIPYRESIS
     Route: 054
     Dates: start: 20101119, end: 20101120
  184. ISODINE GARGLE [Concomitant]
     Dates: start: 20100901, end: 20100901
  185. ISODINE GARGLE [Concomitant]
     Dates: start: 20100928, end: 20100928
  186. ISODINE GARGLE [Concomitant]
     Dates: start: 20101116, end: 20101116
  187. ISODINE GARGLE [Concomitant]
     Dosage: ROUTE: OR
     Dates: start: 20100827, end: 20100827
  188. OLMETEC [Concomitant]
     Indication: HYPERTENSION
     Route: 048
     Dates: start: 20100901, end: 20100907
  189. OLMETEC [Concomitant]
     Indication: HYPERTENSION
     Route: 048
     Dates: start: 20100914, end: 20101018
  190. SULPERAZON [Concomitant]
     Dates: start: 20101006, end: 20101012
  191. PANSPORIN [Concomitant]
     Dates: start: 20100821, end: 20100827
  192. PANSPORIN [Concomitant]
     Dates: end: 20101006
  193. ALLELOCK [Concomitant]
     Route: 048
     Dates: start: 20100830, end: 20100830
  194. ALLELOCK [Concomitant]
     Route: 048
     Dates: start: 20100914, end: 20100915
  195. TRH [Concomitant]
     Route: 042
     Dates: start: 20101115, end: 20101115
  196. SALAZOPYRIN [Concomitant]
     Dates: start: 200902
  197. SALAZOPYRIN [Concomitant]
     Dates: start: 20091027

REACTIONS (14)
  - Histiocytosis haematophagic [Fatal]
  - Multi-organ failure [Fatal]
  - Pyrexia [Not Recovered/Not Resolved]
  - Ascites [Unknown]
  - Platelet count decreased [Recovered/Resolved]
  - Drug-induced liver injury [Recovered/Resolved]
  - Renal disorder [Recovered/Resolved]
  - Cellulitis [Recovered/Resolved]
  - Pneumocystis jirovecii pneumonia [Recovered/Resolved]
  - Infection [Unknown]
  - Hepatitis C [Unknown]
  - Anaemia [Recovered/Resolved]
  - Bursitis [Recovered/Resolved]
  - Drug eruption [Recovered/Resolved]
